FAERS Safety Report 9807346 (Version 2)
Quarter: 2014Q1

REPORT INFORMATION
  Report Type: Spontaneous
  Country: US (occurrence: US)
  Receive Date: 20140110
  Receipt Date: 20140112
  Transmission Date: 20141002
  Serious: No
  Sender: FDA-Public Use
  Company Number: US-009507513-1401USA003682

PATIENT
  Age: 62 Year
  Sex: Male

DRUGS (1)
  1. PROVENTIL [Suspect]
     Dosage: UNK; 1 STANDARD DOSE OF 6.7

REACTIONS (2)
  - Incorrect dosage administered [Unknown]
  - Product quality issue [Unknown]
